FAERS Safety Report 8862350 (Version 1)
Quarter: 2012Q4

REPORT INFORMATION
  Report Type: 
  Country: AU (occurrence: AU)
  Receive Date: 20121026
  Receipt Date: 20121026
  Transmission Date: 20130627
  Serious: Yes (Other)
  Sender: FDA-Public Use
  Company Number: AU-ACCORD-015015

PATIENT
  Age: 53 Year
  Sex: Female

DRUGS (1)
  1. MYCOPHENOLATE MOFETIL [Suspect]
     Indication: KIDNEY TRANSPLANT

REACTIONS (2)
  - Colitis [Not Recovered/Not Resolved]
  - Inflammatory bowel disease [Unknown]
